FAERS Safety Report 8837067 (Version 1)
Quarter: 2012Q4

REPORT INFORMATION
  Report Type: Report from Study
  Country: FR (occurrence: FR)
  Receive Date: 20121012
  Receipt Date: 20121012
  Transmission Date: 20130627
  Serious: Yes (Hospitalization)
  Sender: FDA-Public Use
  Company Number: FR-SANOFI-AVENTIS-2012SA074591

PATIENT
  Weight: 73 kg

DRUGS (8)
  1. INSULIN GLARGINE [Suspect]
     Indication: TYPE 2 DIABETES MELLITUS
     Route: 058
  2. INSULIN LISPRO [Suspect]
     Indication: TYPE 2 DIABETES MELLITUS
     Route: 058
  3. DEPAKENE [Concomitant]
  4. FENOFIBRATE [Concomitant]
  5. OFLOXIN [Concomitant]
  6. DIAMICRON [Concomitant]
  7. DEROXAT [Concomitant]
  8. MOGADON [Concomitant]

REACTIONS (1)
  - Hospitalisation [Unknown]
